FAERS Safety Report 22021262 (Version 1)
Quarter: 2023Q1

REPORT INFORMATION
  Report Type: Spontaneous
  Country: GB (occurrence: GB)
  Receive Date: 20230222
  Receipt Date: 20230222
  Transmission Date: 20230417
  Serious: Yes (Disabling)
  Sender: FDA-Public Use
  Company Number: GB-MHRA-MED-202302080725491810-YGVNT

PATIENT
  Age: 68 Year
  Sex: Male

DRUGS (2)
  1. OLANZAPINE [Suspect]
     Active Substance: OLANZAPINE
     Indication: Adverse drug reaction
     Dosage: 300 MG, 2/M
     Route: 065
     Dates: start: 20100201
  2. FINASTERIDE [Concomitant]
     Active Substance: FINASTERIDE
     Indication: Product used for unknown indication
     Dosage: UNK UNK, UNKNOWN
     Route: 065

REACTIONS (2)
  - Bone tuberculosis [Not Recovered/Not Resolved]
  - Product prescribing error [Unknown]

NARRATIVE: CASE EVENT DATE: 20200101
